FAERS Safety Report 16671392 (Version 1)
Quarter: 2019Q3

REPORT INFORMATION
  Report Type: Spontaneous
  Country: US (occurrence: US)
  Receive Date: 20190806
  Receipt Date: 20190806
  Transmission Date: 20191004
  Serious: No
  Sender: FDA-Public Use
  Company Number: US-GLENMARK PHARMACEUTICALS-2019GMK040128

PATIENT

DRUGS (1)
  1. NIZATIDINE CAPSULES USP, 150 MG [Suspect]
     Active Substance: NIZATIDINE
     Indication: PRODUCT USED FOR UNKNOWN INDICATION
     Dosage: UNK (TOOK THE MEDICATION YEARS AGO)
     Route: 065

REACTIONS (4)
  - Malaise [Unknown]
  - Abdominal discomfort [Unknown]
  - Product odour abnormal [Unknown]
  - Nausea [Unknown]
